FAERS Safety Report 18438982 (Version 1)
Quarter: 2020Q4

REPORT INFORMATION
  Report Type: Spontaneous
  Country: US (occurrence: US)
  Receive Date: 20201028
  Receipt Date: 20201028
  Transmission Date: 20210114
  Serious: No
  Sender: FDA-Public Use
  Company Number: US-PARATEK PHARMACEUTICALS, INC.-2020PTK00079

PATIENT
  Age: 76 Year
  Sex: Male

DRUGS (7)
  1. DULOXETINE. [Concomitant]
     Active Substance: DULOXETINE
  2. AMIKACIN. [Concomitant]
     Active Substance: AMIKACIN
  3. PROTONIX [Concomitant]
     Active Substance: PANTOPRAZOLE SODIUM
  4. NUZYRA [Suspect]
     Active Substance: OMADACYCLINE
     Indication: MYCOBACTERIAL INFECTION
     Dosage: 300 MG, 1X/DAY RIGHT BEFORE BEDTIME
     Route: 048
     Dates: start: 20200521
  5. AZITHROMYCIN ANHYDROUS. [Concomitant]
     Active Substance: AZITHROMYCIN ANHYDROUS
  6. VITAMIN B12 [Concomitant]
     Active Substance: CYANOCOBALAMIN
  7. VITAMIN B-6 [Concomitant]
     Active Substance: PYRIDOXINE

REACTIONS (2)
  - Insomnia [Not Recovered/Not Resolved]
  - Off label use [Not Recovered/Not Resolved]

NARRATIVE: CASE EVENT DATE: 20200521
